FAERS Safety Report 5377836-6 (Version None)
Quarter: 2007Q3

REPORT INFORMATION
  Report Type: 
  Country: None (occurrence: None)
  Receive Date: 20070703
  Receipt Date: 20070621
  Transmission Date: 20080115
  Serious: Yes (Hospitalization)
  Sender: FDA-Public Use
  Company Number: DK-PFIZER INC-2007052831

PATIENT
  Sex: Female

DRUGS (1)
  1. SULFASALAZINE [Suspect]
     Indication: ARTHRITIS
     Route: 048

REACTIONS (6)
  - DIARRHOEA [None]
  - LUNG INFILTRATION [None]
  - NAUSEA [None]
  - PLEURAL DISORDER [None]
  - PYREXIA [None]
  - RASH GENERALISED [None]
